FAERS Safety Report 11183070 (Version 5)
Quarter: 2015Q3

REPORT INFORMATION
  Report Type: Spontaneous
  Country: JP (occurrence: JP)
  Receive Date: 20150611
  Receipt Date: 20150828
  Transmission Date: 20151125
  Serious: Yes (Other)
  Sender: FDA-Public Use
  Company Number: JP-009507513-1506JPN004659

PATIENT

DRUGS (3)
  1. VANCOMYCIN [Concomitant]
     Active Substance: VANCOMYCIN
     Dosage: DAILY DOSAGE UNKNOWN
     Route: 065
  2. TARGOCID [Suspect]
     Active Substance: TEICOPLANIN
     Indication: STAPHYLOCOCCAL INFECTION
     Dosage: DAILY DOSAGE UNKNOWN
     Route: 041
     Dates: end: 20150603
  3. CUBICIN [Suspect]
     Active Substance: DAPTOMYCIN
     Indication: STAPHYLOCOCCAL INFECTION
     Dosage: DAILY DOSAGE UNKNOWN
     Route: 041
     Dates: start: 20150604, end: 201506

REACTIONS (2)
  - White blood cell count decreased [Unknown]
  - Drug eruption [Not Recovered/Not Resolved]

NARRATIVE: CASE EVENT DATE: 201506
